FAERS Safety Report 24421958 (Version 1)
Quarter: 2024Q4

REPORT INFORMATION
  Report Type: Spontaneous
  Country: US (occurrence: US)
  Receive Date: 20241010
  Receipt Date: 20241010
  Transmission Date: 20250115
  Serious: Yes (Life-Threatening, Hospitalization)
  Sender: ACCORD
  Company Number: US-MLMSERVICE-20240923-PI202752-00049-1

PATIENT
  Age: 35 Year
  Sex: Male

DRUGS (1)
  1. AMITRIPTYLINE [Suspect]
     Active Substance: AMITRIPTYLINE
     Indication: Vomiting

REACTIONS (4)
  - Atrial fibrillation [Unknown]
  - Intentional product use issue [Unknown]
  - Tachycardia [Unknown]
  - Off label use [Unknown]
